FAERS Safety Report 7860134-6 (Version None)
Quarter: 2011Q4

REPORT INFORMATION
  Report Type: 
  Country: None (occurrence: None)
  Receive Date: 20111027
  Receipt Date: 20111021
  Transmission Date: 20120403
  Serious: Yes (Other)
  Sender: FDA-Public Use
  Company Number: FR-SANOFI-AVENTIS-2011SA069577

PATIENT
  Age: 63 Year
  Sex: Female

DRUGS (3)
  1. RABEPRAZOLE SODIUM [Suspect]
     Route: 048
     Dates: start: 20110915, end: 20110919
  2. LOVENOX [Suspect]
     Route: 058
     Dates: start: 20110901, end: 20110919
  3. ORBENIN CAP [Suspect]
     Route: 041
     Dates: start: 20110904, end: 20110919

REACTIONS (2)
  - PLATELET COUNT DECREASED [None]
  - NEUTROPENIA [None]
